FAERS Safety Report 9527559 (Version 1)
Quarter: 2013Q3

REPORT INFORMATION
  Report Type: Spontaneous
  Country: US (occurrence: US)
  Receive Date: 20130917
  Receipt Date: 20130917
  Transmission Date: 20140515
  Serious: No
  Sender: FDA-Public Use
  Company Number: US-B.I. PHARMACEUTICALS,INC./RIDGEFIELD-2013-BI-27899BP

PATIENT
  Age: 52 Year
  Sex: Female
  Weight: 56 kg

DRUGS (6)
  1. COMBIVENT [Suspect]
     Indication: ASTHMA
     Dosage: STRENGTH: 18 MCG / 103 MCG;
     Route: 055
  2. TRAZODONE [Concomitant]
     Indication: DEPRESSION
     Dosage: 100 MG
     Route: 048
  3. GABAPENTIN [Concomitant]
     Indication: NEURALGIA
     Dosage: 600 MG
     Route: 048
  4. SYMBICORT [Concomitant]
     Indication: ASTHMA
     Dosage: 2 PUF
     Route: 048
  5. TRAMADOL [Concomitant]
     Indication: NEURALGIA
     Dosage: 300 MG
     Route: 048
  6. ASPIRIN [Concomitant]
     Indication: CARDIAC DISORDER
     Dosage: 81 MG
     Route: 048

REACTIONS (2)
  - Fall [Recovered/Resolved with Sequelae]
  - Off label use [Recovered/Resolved]
